FAERS Safety Report 22265639 (Version 1)
Quarter: 2023Q2

REPORT INFORMATION
  Report Type: Spontaneous
  Country: US (occurrence: US)
  Receive Date: 20230428
  Receipt Date: 20230428
  Transmission Date: 20230722
  Serious: No
  Sender: FDA-Public Use
  Company Number: US-MYOVANT SCIENCES GMBH-2023MYSCI0400144

PATIENT
  Age: 71 Year
  Sex: Male

DRUGS (9)
  1. ORGOVYX [Suspect]
     Active Substance: RELUGOLIX
     Indication: Prostate cancer
     Dosage: 240 MILLIGRAM, ONE TIME DOSE
     Route: 048
     Dates: start: 20221026, end: 20221026
  2. ORGOVYX [Suspect]
     Active Substance: RELUGOLIX
     Dosage: 120 MILLIGRAM, QD
     Route: 048
     Dates: start: 20221027, end: 20230403
  3. LISINOPRIL [Concomitant]
     Active Substance: LISINOPRIL
     Indication: Hypertension
     Dosage: 10 MILLIGRAM, QD
     Route: 065
  4. LIPITOR [Concomitant]
     Active Substance: ATORVASTATIN CALCIUM
     Indication: Blood cholesterol increased
     Dosage: UNK, QD
     Route: 065
  5. ONE A DAY                          /02262701/ [Concomitant]
     Indication: Supplementation therapy
     Dosage: UNK, QD
     Route: 065
  6. ZINC                               /00156502/ [Concomitant]
     Indication: Immune enhancement therapy
     Dosage: UNK, QD
     Route: 065
  7. VITAMIN D3 [Concomitant]
     Active Substance: CHOLECALCIFEROL
     Indication: Immune enhancement therapy
     Dosage: UNK, QD
     Route: 065
  8. VITAMIN D                          /00107901/ [Concomitant]
     Indication: Immune enhancement therapy
     Dosage: UNK
     Route: 065
  9. TOCOPHEROL [Concomitant]
     Active Substance: TOCOPHEROL
     Indication: Immune enhancement therapy
     Dosage: UNK
     Route: 065

REACTIONS (3)
  - Therapy interrupted [Unknown]
  - Product distribution issue [Unknown]
  - Incorrect dosage administered [Recovered/Resolved]

NARRATIVE: CASE EVENT DATE: 20221026
